FAERS Safety Report 9011043 (Version 1)
Quarter: 2013Q1

REPORT INFORMATION
  Report Type: Spontaneous
  Country: US (occurrence: US)
  Receive Date: 20130109
  Receipt Date: 20130109
  Transmission Date: 20140127
  Serious: Yes (Other)
  Sender: FDA-Public Use
  Company Number: US-GLAXOSMITHKLINE-A0903142A

PATIENT
  Age: 61 Year
  Sex: Male

DRUGS (1)
  1. ROSIGLITAZONE MALEATE [Suspect]
     Indication: DIABETES MELLITUS
     Route: 048

REACTIONS (8)
  - Monoplegia [Not Recovered/Not Resolved]
  - Monoplegia [Unknown]
  - Cardiovascular disorder [Unknown]
  - Mobility decreased [Unknown]
  - Myocardial ischaemia [Unknown]
  - Ejection fraction decreased [Unknown]
  - Coronary artery disease [Unknown]
  - Arteriosclerosis coronary artery [Unknown]
